FAERS Safety Report 17503605 (Version 1)
Quarter: 2020Q1

REPORT INFORMATION
  Report Type: Spontaneous
  Country: US (occurrence: US)
  Receive Date: 20200305
  Receipt Date: 20200305
  Transmission Date: 20200409
  Serious: Yes (Life-Threatening, Hospitalization)
  Sender: FDA-Public Use
  Company Number: US-TEVA-2020-US-1193686

PATIENT
  Age: 24 Year
  Sex: Female

DRUGS (6)
  1. LUGOL [Suspect]
     Active Substance: IODINE\POTASSIUM IODIDE
     Indication: THYROTOXIC CRISIS
     Route: 065
  2. PROPRANOLOL [Suspect]
     Active Substance: PROPRANOLOL HYDROCHLORIDE
     Indication: THYROTOXIC CRISIS
     Route: 065
  3. IOHEXOL [Suspect]
     Active Substance: IOHEXOL
     Route: 042
  4. METHIMAZOLE. [Suspect]
     Active Substance: METHIMAZOLE
     Indication: THYROTOXIC CRISIS
     Route: 065
  5. HYDROCORTISONE. [Suspect]
     Active Substance: HYDROCORTISONE
     Route: 065
  6. FUROSEMIDE. [Suspect]
     Active Substance: FUROSEMIDE
     Indication: THYROTOXIC CRISIS
     Route: 065

REACTIONS (5)
  - Cardiac failure [Recovering/Resolving]
  - Drug ineffective [Unknown]
  - Foetal death [Unknown]
  - Thyrotoxic crisis [Recovering/Resolving]
  - Exposure during pregnancy [Unknown]
